FAERS Safety Report 6713682-6 (Version None)
Quarter: 2010Q2

REPORT INFORMATION
  Report Type: 
  Country: None (occurrence: None)
  Receive Date: 20100504
  Receipt Date: 20100423
  Transmission Date: 20101027
  Serious: Yes (Hospitalization)
  Sender: FDA-Public Use
  Company Number: 572912

PATIENT
  Age: 83 Year
  Sex: Male

DRUGS (1)
  1. HEPARIN SODIUM [Suspect]
     Indication: ANTICOAGULANT THERAPY
     Dosage: 7000 IU INTERNATIONAL UNIT(S)

REACTIONS (8)
  - GRAFT THROMBOSIS [None]
  - HEPARIN-INDUCED THROMBOCYTOPENIA [None]
  - HYPERCOAGULATION [None]
  - PERIPHERAL ARTERY ANEURYSM [None]
  - PERIPHERAL ISCHAEMIA [None]
  - POST PROCEDURAL COMPLICATION [None]
  - PULSE ABSENT [None]
  - THROMBOSIS [None]
